FAERS Safety Report 6270740-0 (Version None)
Quarter: 2009Q3

REPORT INFORMATION
  Report Type: 
  Country: None (occurrence: None)
  Receive Date: 20090716
  Receipt Date: 20090708
  Transmission Date: 20100115
  Serious: Yes (Hospitalization)
  Sender: FDA-Public Use
  Company Number: IT-PFIZER INC-2009227485

PATIENT
  Age: 70 Year

DRUGS (1)
  1. CELEBREX [Suspect]
     Indication: OSTEOARTHRITIS
     Dosage: 100 MG, UNK, TOTAL
     Route: 048
     Dates: start: 20090616, end: 20090616

REACTIONS (5)
  - ERYTHEMA [None]
  - FALL [None]
  - HYPERSENSITIVITY [None]
  - HYPOTENSION [None]
  - LOSS OF CONSCIOUSNESS [None]
